FAERS Safety Report 8016101-5 (Version None)
Quarter: 2011Q4

REPORT INFORMATION
  Report Type: 
  Country: None (occurrence: None)
  Receive Date: 20111230
  Receipt Date: 20111222
  Transmission Date: 20120403
  Serious: Yes (Other)
  Sender: FDA-Public Use
  Company Number: JP-BRISTOL-MYERS SQUIBB COMPANY-16317430

PATIENT
  Age: 3 Decade
  Sex: Female

DRUGS (1)
  1. METFORMIN HCL [Suspect]
     Route: 048

REACTIONS (2)
  - COLITIS [None]
  - ASCITES [None]
